FAERS Safety Report 15122295 (Version 3)
Quarter: 2018Q3

REPORT INFORMATION
  Report Type: Report from Study
  Country: US (occurrence: US)
  Receive Date: 20180709
  Receipt Date: 20180926
  Transmission Date: 20181010
  Serious: Yes (Hospitalization, Other)
  Sender: FDA-Public Use
  Company Number: US-PFIZER INC-2018201575

PATIENT
  Age: 64 Year
  Sex: Female

DRUGS (4)
  1. SUTENT [Suspect]
     Active Substance: SUNITINIB MALATE
     Indication: RENAL CELL CARCINOMA
     Dosage: 25 MG, CYCLIC (25 MG ONCE DAILY, 4 WEEKS ON FOLLOWED BY 2 WEEKS OFF)
     Route: 048
     Dates: start: 20180330
  2. SUTENT [Suspect]
     Active Substance: SUNITINIB MALATE
     Dosage: 25 MG, CYCLIC [ONCE DAILY 4 WEEKS ON FOLLOWED BY 2 WEEKS OFF]
     Route: 048
     Dates: start: 20180622
  3. SUTENT [Suspect]
     Active Substance: SUNITINIB MALATE
     Dosage: 37.5 MG, CYCLIC[4 WEEKS ON, FOLLOWED BY 2 WEEKS OFF]
     Dates: start: 20180512, end: 20180609
  4. SUTENT [Suspect]
     Active Substance: SUNITINIB MALATE
     Dosage: 50 MG, CYCLIC [4 WEEKS ON 2 WEEKS OFF]
     Dates: start: 20180330, end: 20180427

REACTIONS (25)
  - Diarrhoea [Unknown]
  - Oedema peripheral [Not Recovered/Not Resolved]
  - Tooth abscess [Unknown]
  - Full blood count decreased [Unknown]
  - Hypothyroidism [Unknown]
  - Musculoskeletal stiffness [Unknown]
  - Joint swelling [Unknown]
  - Cholecystitis [Unknown]
  - Gastric disorder [Unknown]
  - Abdominal pain [Not Recovered/Not Resolved]
  - Gastrointestinal haemorrhage [Unknown]
  - Colitis [Unknown]
  - Dysgeusia [Unknown]
  - Myalgia [Unknown]
  - Nausea [Not Recovered/Not Resolved]
  - Blood pressure increased [Recovered/Resolved]
  - Fatigue [Not Recovered/Not Resolved]
  - Blood potassium decreased [Unknown]
  - Cortisol decreased [Unknown]
  - Chills [Unknown]
  - Weight decreased [Unknown]
  - Platelet count decreased [Unknown]
  - Vomiting [Unknown]
  - Tongue blistering [Unknown]
  - Peripheral swelling [Unknown]

NARRATIVE: CASE EVENT DATE: 2018
